FAERS Safety Report 11720176 (Version 1)
Quarter: 2015Q4

REPORT INFORMATION
  Report Type: Spontaneous
  Country: US (occurrence: US)
  Receive Date: 20151110
  Receipt Date: 20151110
  Transmission Date: 20160304
  Serious: No
  Sender: FDA-Public Use
  Company Number: US-PERRIGO-15US005723

PATIENT
  Sex: Female

DRUGS (1)
  1. CICLOPIROX RX 8% 3C0 [Suspect]
     Active Substance: CICLOPIROX
     Indication: ONYCHOMYCOSIS
     Dosage: SMALL AMOUNT, QD AT BEDTIME
     Route: 061
     Dates: start: 20150530, end: 20150601

REACTIONS (2)
  - Papule [Not Recovered/Not Resolved]
  - Hypersensitivity [Not Recovered/Not Resolved]

NARRATIVE: CASE EVENT DATE: 20150530
